FAERS Safety Report 4389551-6 (Version None)
Quarter: 2004Q2

REPORT INFORMATION
  Report Type: 
  Country: None (occurrence: None)
  Receive Date: 20040629
  Receipt Date: 20040412
  Transmission Date: 20050107
  Serious: Yes (Hospitalization)
  Sender: FDA-Public Use
  Company Number: US-JNJFOC-20040402617

PATIENT
  Age: 43 Year
  Sex: Female

DRUGS (4)
  1. DURAGESIC [Suspect]
     Indication: PAIN
     Dosage: SEE IMAGE
     Route: 062
     Dates: end: 20040301
  2. DURAGESIC [Suspect]
     Indication: PAIN
     Dosage: SEE IMAGE
     Route: 062
     Dates: start: 20040301
  3. ISOSORBIDE (TABLETS) ISOSORBIDE [Concomitant]
  4. ACETYLSALICYLIC ACID (TABLETS) ACETYLSALICYLIC ACID [Concomitant]

REACTIONS (1)
  - CHEST PAIN [None]
